FAERS Safety Report 8520925-5 (Version None)
Quarter: 2012Q3

REPORT INFORMATION
  Report Type: 
  Country: None (occurrence: None)
  Receive Date: 20120719
  Receipt Date: 20120717
  Transmission Date: 20120928
  Serious: No
  Sender: FDA-Public Use
  Company Number: US-PFIZER INC-2012113588

PATIENT
  Sex: Female

DRUGS (5)
  1. HYDROCODONE [Concomitant]
     Dosage: UNK
  2. OXYCODONE [Concomitant]
     Dosage: UNK
  3. NUCYNTA [Concomitant]
     Dosage: UNK
  4. CELEBREX [Suspect]
     Indication: PAIN
     Dosage: UNK
  5. CONZIP [Concomitant]
     Dosage: UNK

REACTIONS (4)
  - HEADACHE [None]
  - NAUSEA [None]
  - INFLUENZA LIKE ILLNESS [None]
  - MALAISE [None]
